FAERS Safety Report 11918740 (Version 1)
Quarter: 2016Q1

REPORT INFORMATION
  Report Type: Spontaneous
  Country: US (occurrence: US)
  Receive Date: 20160115
  Receipt Date: 20160115
  Transmission Date: 20160526
  Serious: No
  Sender: FDA-Public Use
  Company Number: US-JNJFOC-20151212716

PATIENT

DRUGS (4)
  1. NESIRITIDE [Suspect]
     Active Substance: NESIRITIDE
     Indication: BLOOD PRESSURE MEASUREMENT
     Route: 042
  2. NESIRITIDE [Suspect]
     Active Substance: NESIRITIDE
     Indication: BLOOD PRESSURE MEASUREMENT
     Route: 042
  3. NESIRITIDE [Suspect]
     Active Substance: NESIRITIDE
     Indication: CARDIAC FAILURE
     Route: 042
  4. NESIRITIDE [Suspect]
     Active Substance: NESIRITIDE
     Indication: CARDIAC FAILURE
     Route: 042

REACTIONS (3)
  - Blood pressure systolic decreased [Unknown]
  - Cyclic AMP increased [Unknown]
  - Blood pressure diastolic decreased [Unknown]
